FAERS Safety Report 14556403 (Version 6)
Quarter: 2018Q3

REPORT INFORMATION
  Report Type: Report from Study
  Country: None (occurrence: JP)
  Receive Date: 20180221
  Receipt Date: 20180914
  Transmission Date: 20181010
  Serious: Yes (Hospitalization)
  Sender: FDA-Public Use
  Company Number: JP-ABBVIE-17K-087-2199888-00

PATIENT
  Age: 83 Year
  Sex: Male
  Weight: 55 kg

DRUGS (13)
  1. DUODOPA [Suspect]
     Active Substance: CARBIDOPA\LEVODOPA
     Dosage: MD: 11 ML CD: 1.6 ML/HR X 16 HR ED: 1 ML/UNIT X 2
     Route: 050
     Dates: start: 20171226
  2. MOSAPRIDE CITRATE HYDRATE [Concomitant]
     Active Substance: MOSAPRIDE CITRATE DIHYDRATE
     Indication: PRODUCT USED FOR UNKNOWN INDICATION
     Route: 048
  3. YOKUKANSAN EXTRACT [Concomitant]
     Indication: ILL-DEFINED DISORDER
     Route: 048
  4. SUVOREXANT. [Concomitant]
     Active Substance: SUVOREXANT
     Indication: ILL-DEFINED DISORDER
     Route: 048
  5. DAIKENCHUTO [Concomitant]
     Active Substance: HERBALS
     Indication: ILL-DEFINED DISORDER
     Route: 048
  6. ROTIGOTINE [Concomitant]
     Active Substance: ROTIGOTINE
     Indication: PARKINSON^S DISEASE
     Route: 062
     Dates: start: 20180106
  7. BROTIZOLAM [Concomitant]
     Active Substance: BROTIZOLAM
     Indication: ILL-DEFINED DISORDER
     Route: 048
  8. DUODOPA [Suspect]
     Active Substance: CARBIDOPA\LEVODOPA
     Indication: PARKINSON^S DISEASE
     Dosage: MD: 11 ML CD: 1.6 ML/HRS ? 18 HRS ED: 1 ML/UNIT ? 2
     Route: 050
     Dates: start: 20171220, end: 20171225
  9. ISTRADEFYLLINE [Concomitant]
     Active Substance: ISTRADEFYLLINE
     Indication: PARKINSON^S DISEASE
     Route: 048
  10. MAGNESIUM OXIDE. [Concomitant]
     Active Substance: MAGNESIUM OXIDE
     Indication: ILL-DEFINED DISORDER
     Route: 048
  11. DOMPERIDONE [Concomitant]
     Active Substance: DOMPERIDONE
     Indication: ILL-DEFINED DISORDER
     Route: 048
  12. LUBIPROSTONE [Concomitant]
     Active Substance: LUBIPROSTONE
     Indication: ILL-DEFINED DISORDER
     Route: 048
  13. BICALUTAMIDE. [Concomitant]
     Active Substance: BICALUTAMIDE
     Indication: ILL-DEFINED DISORDER
     Route: 048

REACTIONS (6)
  - Unintentional medical device removal [Unknown]
  - Anxiety [Unknown]
  - Device dislocation [Unknown]
  - Fall [Unknown]
  - Femoral neck fracture [Recovering/Resolving]
  - Device kink [Recovered/Resolved]

NARRATIVE: CASE EVENT DATE: 20180111
